FAERS Safety Report 8113507-0 (Version None)
Quarter: 2012Q1

REPORT INFORMATION
  Report Type: 
  Country: None (occurrence: None)
  Receive Date: 20120203
  Receipt Date: 20120130
  Transmission Date: 20120608
  Serious: Yes (Hospitalization, Other)
  Sender: FDA-Public Use
  Company Number: GB-PFIZER INC-2012019115

PATIENT
  Age: 43 Year
  Sex: Female

DRUGS (1)
  1. RAMIPRIL [Suspect]
     Indication: HYPERTENSION
     Dosage: 1.25 MG, 1X/DAY
     Route: 048
     Dates: start: 20110927, end: 20111124

REACTIONS (11)
  - HYPERHIDROSIS [None]
  - MALAISE [None]
  - DIZZINESS [None]
  - HYPERVENTILATION [None]
  - DYSPHONIA [None]
  - HYPOAESTHESIA [None]
  - PALPITATIONS [None]
  - PANIC ATTACK [None]
  - EAR DISCOMFORT [None]
  - CHEST DISCOMFORT [None]
  - SLEEP DISORDER [None]
